FAERS Safety Report 5879897-4 (Version None)
Quarter: 2008Q3

REPORT INFORMATION
  Report Type: 
  Country: None (occurrence: None)
  Receive Date: 20080912
  Receipt Date: 20080905
  Transmission Date: 20090109
  Serious: Yes (Hospitalization, Other)
  Sender: FDA-Public Use
  Company Number: JP-PFIZER INC-2008075041

PATIENT
  Sex: Female

DRUGS (1)
  1. MEDROL [Suspect]
     Route: 048

REACTIONS (1)
  - PNEUMONIA [None]
